FAERS Safety Report 21883411 (Version 2)
Quarter: 2023Q2

REPORT INFORMATION
  Report Type: Spontaneous
  Country: US (occurrence: US)
  Receive Date: 20230119
  Receipt Date: 20230408
  Transmission Date: 20230721
  Serious: Yes (Other)
  Sender: FDA-Public Use
  Company Number: US-ABBVIE-4275796

PATIENT
  Sex: Female
  Weight: 91 kg

DRUGS (4)
  1. HUMIRA [Suspect]
     Active Substance: ADALIMUMAB
     Indication: Product used for unknown indication
     Route: 058
     Dates: start: 2005
  2. XELJANZ XR [Suspect]
     Active Substance: TOFACITINIB CITRATE
     Indication: Rheumatoid arthritis
     Route: 048
     Dates: start: 2013
  3. METHOTREXATE [Concomitant]
     Active Substance: METHOTREXATE
     Indication: Rheumatoid arthritis
     Dosage: 7 PILLS EVERY MONDAY
     Dates: start: 2008
  4. PLAQUENIL [Concomitant]
     Active Substance: HYDROXYCHLOROQUINE SULFATE
     Indication: Rheumatoid arthritis
     Dosage: 200 MG FORM STRENGTH
     Route: 048
     Dates: start: 2008

REACTIONS (6)
  - Retinal operation [Unknown]
  - Cataract [Unknown]
  - Cataract [Recovered/Resolved]
  - Dry eye [Unknown]
  - Eye disorder [Unknown]
  - Tenon^s cyst [Unknown]

NARRATIVE: CASE EVENT DATE: 20120101
